FAERS Safety Report 16747404 (Version 5)
Quarter: 2019Q4

REPORT INFORMATION
  Report Type: Report from Study
  Country: GB (occurrence: GB)
  Receive Date: 20190827
  Receipt Date: 20191111
  Transmission Date: 20200122
  Serious: Yes (Life-Threatening, Hospitalization, Other)
  Sender: FDA-Public Use
  Company Number: GB-CELGENEUS-GBR-20190507694

PATIENT
  Age: 57 Year
  Sex: Male
  Weight: 64 kg

DRUGS (11)
  1. ABRAXANE [Suspect]
     Active Substance: PACLITAXEL
     Indication: PANCREATIC CARCINOMA METASTATIC
     Dosage: 220 MG X 3
     Route: 041
     Dates: start: 20190513, end: 20190624
  2. GEMCITABINE. [Suspect]
     Active Substance: GEMCITABINE
     Dosage: 1800 MG X 2
     Route: 041
     Dates: start: 20190708, end: 20190715
  3. DOXYCYCLINE. [Suspect]
     Active Substance: DOXYCYCLINE
     Dosage: 100 MILLIGRAM
     Route: 048
     Dates: start: 20190612, end: 20190612
  4. ABRAXANE [Suspect]
     Active Substance: PACLITAXEL
     Dosage: 220 MG X 2
     Route: 041
     Dates: start: 20190708, end: 20190715
  5. ABRAXANE [Suspect]
     Active Substance: PACLITAXEL
     Route: 041
     Dates: end: 20190805
  6. DOXYCYCLINE. [Suspect]
     Active Substance: DOXYCYCLINE
     Route: 065
     Dates: end: 20190615
  7. ABRAXANE [Suspect]
     Active Substance: PACLITAXEL
     Dosage: 220 MG X 2
     Route: 041
  8. GEMCITABINE. [Suspect]
     Active Substance: GEMCITABINE
     Route: 041
     Dates: end: 20190805
  9. GEMCITABINE. [Suspect]
     Active Substance: GEMCITABINE
     Dosage: 1800 MG X 2
     Route: 041
  10. GEMCITABINE. [Suspect]
     Active Substance: GEMCITABINE
     Indication: PANCREATIC CARCINOMA METASTATIC
     Dosage: 1800 MG X 3
     Route: 041
     Dates: start: 20190513, end: 20190624
  11. DOXYCYCLINE. [Suspect]
     Active Substance: DOXYCYCLINE
     Indication: LOWER RESPIRATORY TRACT INFECTION
     Dosage: 200 MILLIGRAM
     Route: 048
     Dates: start: 20190611, end: 20190611

REACTIONS (7)
  - Sepsis [Recovered/Resolved]
  - Lower respiratory tract infection [Recovered/Resolved]
  - Neutrophil count decreased [Recovered/Resolved]
  - Lower respiratory tract infection [Recovered/Resolved]
  - Biliary tract infection [Recovered/Resolved]
  - Diarrhoea [Recovered/Resolved]
  - Lower respiratory tract infection [Recovered/Resolved]

NARRATIVE: CASE EVENT DATE: 20190519
